FAERS Safety Report 8169969-6 (Version None)
Quarter: 2012Q1

REPORT INFORMATION
  Report Type: 
  Country: None (occurrence: None)
  Receive Date: 20120228
  Receipt Date: 20120228
  Transmission Date: 20120608
  Serious: No
  Sender: FDA-Public Use
  Company Number: None

PATIENT
  Sex: Male
  Weight: 71.7 kg

DRUGS (1)
  1. PACLITAXEL [Suspect]
     Dosage: 96MG
     Route: 042

REACTIONS (8)
  - HEART RATE INCREASED [None]
  - FLUSHING [None]
  - PARAESTHESIA [None]
  - ERYTHEMA [None]
  - HYPERHIDROSIS [None]
  - DIZZINESS [None]
  - CHEST DISCOMFORT [None]
  - PHARYNGEAL OEDEMA [None]
